FAERS Safety Report 4606276-X (Version None)
Quarter: 2005Q1

REPORT INFORMATION
  Report Type: 
  Country: None (occurrence: None)
  Receive Date: 20050311
  Receipt Date: 20050302
  Transmission Date: 20050727
  Serious: Yes (Other)
  Sender: FDA-Public Use
  Company Number: BR-ABBOTT-05P-020-0292901-00

PATIENT
  Sex: Female

DRUGS (9)
  1. KALETRA [Suspect]
     Indication: HIV INFECTION
     Dosage: TOTAL DAILY DOSE: LOPINAVIR 799.8MG AND RITONAVIR 199.8 MG
     Route: 048
     Dates: start: 20040929
  2. KALETRA [Suspect]
  3. RITONAVIR SOFT GELATIN CAPSULES [Suspect]
     Indication: DRUG USE FOR UNKNOWN INDICATION
     Route: 065
     Dates: start: 20050202, end: 20050216
  4. EFAVIRENZ [Suspect]
     Indication: DRUG USE FOR UNKNOWN INDICATION
     Route: 065
  5. LAMIVUDINE AND ZIDOVUDINE [Concomitant]
     Indication: HIV INFECTION
     Route: 048
  6. LAMIVUDINE AND ZIDOVUDINE [Concomitant]
     Route: 048
     Dates: end: 20050216
  7. LAMIVUDINE AND ZIDOVUDINE [Concomitant]
     Route: 048
     Dates: start: 20050302
  8. ATAZANAVIR [Concomitant]
     Indication: DRUG USE FOR UNKNOWN INDICATION
     Dates: start: 20050202, end: 20050216
  9. ATAZANAVIR [Concomitant]
     Dates: start: 20050302

REACTIONS (3)
  - DRY SKIN [None]
  - EYELID OEDEMA [None]
  - RASH [None]
